FAERS Safety Report 4526451-2 (Version None)
Quarter: 2004Q4

REPORT INFORMATION
  Report Type: 
  Country: None (occurrence: None)
  Receive Date: 20041214
  Receipt Date: 20041203
  Transmission Date: 20050328
  Serious: Yes (Hospitalization)
  Sender: FDA-Public Use
  Company Number: DE-MERCK-0412DEU00045

PATIENT
  Age: 49 Year
  Sex: Female

DRUGS (2)
  1. SINGULAIR [Suspect]
     Indication: ASTHMA
     Route: 048
     Dates: start: 20020101, end: 20020101
  2. SINGULAIR [Suspect]
     Route: 048
     Dates: start: 20031001, end: 20040901

REACTIONS (10)
  - ABNORMAL SENSATION IN EYE [None]
  - DRUG INEFFECTIVE [None]
  - EOSINOPHILIA [None]
  - HEADACHE [None]
  - HYPERPLASIA [None]
  - LACRIMATION INCREASED [None]
  - NASAL CYST [None]
  - NASAL POLYPS [None]
  - OTITIS MEDIA [None]
  - SINUSITIS [None]
